FAERS Safety Report 9746825 (Version 1)
Quarter: 2013Q4

REPORT INFORMATION
  Report Type: Spontaneous
  Country: US (occurrence: US)
  Receive Date: 20131211
  Receipt Date: 20131211
  Transmission Date: 20140711
  Serious: Yes (Death)
  Sender: FDA-Public Use
  Company Number: US-ALEXION PHARMACEUTICALS INC.-A201303448

PATIENT
  Age: 55 Year
  Sex: Female

DRUGS (3)
  1. SOLIRIS 300MG [Suspect]
     Indication: TRANSPLANT REJECTION
     Dosage: ONE TIME SALVAGE ONLY
     Route: 042
     Dates: start: 20100825
  2. SOLIRIS 300MG [Suspect]
     Indication: LIVER TRANSPLANT
  3. SOLIRIS 300MG [Suspect]
     Indication: OFF LABEL USE

REACTIONS (2)
  - Transplant failure [Fatal]
  - Off label use [Unknown]
